FAERS Safety Report 15672212 (Version 2)
Quarter: 2019Q4

REPORT INFORMATION
  Report Type: Report from Study
  Country: US (occurrence: US)
  Receive Date: 20181129
  Receipt Date: 20191112
  Transmission Date: 20200122
  Serious: Yes (Other)
  Sender: FDA-Public Use
  Company Number: US-TESARO, INC-US-2018TSO02161

PATIENT
  Age: 80 Year
  Sex: Female

DRUGS (11)
  1. CURCUMIN [Concomitant]
     Active Substance: CURCUMIN
     Indication: PRODUCT USED FOR UNKNOWN INDICATION
  2. TYLENOL [Concomitant]
     Active Substance: ACETAMINOPHEN
     Indication: PRODUCT USED FOR UNKNOWN INDICATION
  3. ALEVE [Concomitant]
     Active Substance: NAPROXEN SODIUM
     Indication: PRODUCT USED FOR UNKNOWN INDICATION
  4. VITAMIN D3 [Concomitant]
     Active Substance: CHOLECALCIFEROL
     Indication: PRODUCT USED FOR UNKNOWN INDICATION
  5. NIRAPARIB CAPSULE [Suspect]
     Active Substance: NIRAPARIB
     Indication: RETROPERITONEAL CANCER
     Dosage: 100 MG, QD
     Route: 048
     Dates: start: 20180613
  6. ADVIL [Concomitant]
     Active Substance: IBUPROFEN
     Indication: PRODUCT USED FOR UNKNOWN INDICATION
  7. PANTOPRAZOLE SODIUM. [Concomitant]
     Active Substance: PANTOPRAZOLE SODIUM
     Indication: PRODUCT USED FOR UNKNOWN INDICATION
  8. AZO CRANBERRY (CRANBERRY + LACTOBACILLUS + VITAMIN C) [Concomitant]
     Indication: PRODUCT USED FOR UNKNOWN INDICATION
  9. NIRAPARIB CAPSULE [Suspect]
     Active Substance: NIRAPARIB
     Indication: METASTASES TO RETROPERITONEUM
     Dosage: 300 MG, QD
     Route: 048
     Dates: start: 20180418, end: 20180503
  10. GUAIFENESIN. [Concomitant]
     Active Substance: GUAIFENESIN
     Indication: PRODUCT USED FOR UNKNOWN INDICATION
  11. MILK THISTLE (SILYBUM MARIANUM) [Concomitant]
     Indication: PRODUCT USED FOR UNKNOWN INDICATION

REACTIONS (11)
  - Blood count abnormal [Unknown]
  - Dry mouth [Unknown]
  - Stomatitis [Unknown]
  - Tongue discolouration [Unknown]
  - Unevaluable event [Unknown]
  - Platelet count decreased [Unknown]
  - Urine analysis abnormal [Unknown]
  - Product use in unapproved indication [Unknown]
  - Dyspnoea [Not Recovered/Not Resolved]
  - Constipation [Unknown]
  - Balance disorder [Unknown]

NARRATIVE: CASE EVENT DATE: 20180428
